FAERS Safety Report 6684862-3 (Version None)
Quarter: 2010Q2

REPORT INFORMATION
  Report Type: 
  Country: None (occurrence: None)
  Receive Date: 20100416
  Receipt Date: 20100412
  Transmission Date: 20101027
  Serious: Yes (Hospitalization)
  Sender: FDA-Public Use
  Company Number: US-MERCK-1003USA00645

PATIENT
  Age: 69 Year
  Sex: Female

DRUGS (7)
  1. PRINIVIL [Suspect]
     Indication: HYPERTENSION
     Route: 048
  2. OLANZAPINE [Suspect]
     Indication: BIPOLAR DISORDER
     Route: 048
  3. LITHIUM [Concomitant]
     Route: 048
  4. WARFARIN SODIUM [Concomitant]
     Route: 048
  5. LEVOTHYROXINE SODIUM [Concomitant]
     Route: 065
  6. ALPRAZOLAM [Concomitant]
     Route: 048
  7. DARIFENACIN [Concomitant]
     Route: 048

REACTIONS (2)
  - DRUG INTERACTION [None]
  - PANCREATITIS [None]
